FAERS Safety Report 8739312 (Version 3)
Quarter: 2013Q4

REPORT INFORMATION
  Report Type: Report from Study
  Country: US (occurrence: US)
  Receive Date: 20120823
  Receipt Date: 20131031
  Transmission Date: 20140711
  Serious: Yes (Death, Life-Threatening, Hospitalization)
  Sender: FDA-Public Use
  Company Number: US-MERCK-1208USA003285

PATIENT
  Age: 69 Year
  Sex: Female
  Weight: 53.2 kg

DRUGS (4)
  1. VORINOSTAT [Suspect]
     Indication: GLIOBLASTOMA MULTIFORME
     Dosage: 300 MG, ON DAYS 1-5, QW
     Route: 048
     Dates: start: 20120702
  2. VORINOSTAT [Suspect]
     Dosage: 300 MG, ON DAYS 1-5, QW
     Route: 048
     Dates: start: 20120723, end: 20120730
  3. TEMOZOLOMIDE [Suspect]
     Indication: GLIOBLASTOMA MULTIFORME
     Dosage: 75 MG/M2, QD
     Route: 048
     Dates: start: 20120702
  4. TEMOZOLOMIDE [Suspect]
     Dosage: 75 MG/M2, QD
     Route: 048
     Dates: start: 20120723, end: 20120730

REACTIONS (5)
  - Death [Fatal]
  - White blood cell count decreased [Not Recovered/Not Resolved]
  - Platelet count decreased [Not Recovered/Not Resolved]
  - Neutrophil count decreased [Not Recovered/Not Resolved]
  - Febrile neutropenia [Not Recovered/Not Resolved]
